FAERS Safety Report 17160982 (Version 1)
Quarter: 2019Q4

REPORT INFORMATION
  Report Type: Spontaneous
  Country: DE (occurrence: ES)
  Receive Date: 20191216
  Receipt Date: 20191216
  Transmission Date: 20200122
  Serious: Yes (Hospitalization)
  Sender: FDA-Public Use
  Company Number: NVSC2019ES069611

PATIENT
  Age: 36 Year
  Sex: Male

DRUGS (1)
  1. LAMISIL [Suspect]
     Active Substance: TERBINAFINE HYDROCHLORIDE
     Indication: ANIMAL BITE
     Dosage: UNK UNK, BID
     Route: 065

REACTIONS (9)
  - Faeces discoloured [Unknown]
  - Chromaturia [Recovered/Resolved]
  - Blood cholesterol increased [Unknown]
  - Fatigue [Unknown]
  - Yellow skin [Recovered/Resolved]
  - Blood bilirubin increased [Unknown]
  - Eye colour change [Unknown]
  - Pruritus [Unknown]
  - Extra dose administered [Unknown]
